FAERS Safety Report 9997664 (Version 1)
Quarter: 2014Q1

REPORT INFORMATION
  Report Type: Spontaneous
  Country: US (occurrence: None)
  Receive Date: 20140225
  Receipt Date: 20140225
  Transmission Date: 20141002
  Serious: Yes (Other)
  Sender: FDA-Public Use
  Company Number: 2013-115

PATIENT
  Sex: Female

DRUGS (1)
  1. PRIALT [Suspect]
     Indication: PAIN
     Dosage: UNK MCG, ONCE/HR, INTRATHECAL
     Route: 037
     Dates: start: 201204

REACTIONS (1)
  - Hallucination, auditory [None]
